FAERS Safety Report 22297875 (Version 5)
Quarter: 2023Q2

REPORT INFORMATION
  Report Type: Spontaneous
  Country: RU (occurrence: RU)
  Receive Date: 20230509
  Receipt Date: 20230615
  Transmission Date: 20230722
  Serious: Yes (Hospitalization, Other)
  Sender: FDA-Public Use
  Company Number: RU-ASTELLAS-2023EU001021

PATIENT
  Age: 10 Month
  Sex: Male

DRUGS (1)
  1. TACROLIMUS [Suspect]
     Active Substance: TACROLIMUS
     Indication: Liver transplant
     Dosage: UNK UNK, UNKNOWN FREQ.
     Route: 065

REACTIONS (17)
  - Dyspepsia [Unknown]
  - Acute kidney injury [Unknown]
  - Acute respiratory distress syndrome [Unknown]
  - Pancytopenia [Unknown]
  - Drug intolerance [Unknown]
  - Colitis [Unknown]
  - Infection [Unknown]
  - Intestinal perforation [Unknown]
  - Hypokalaemia [Unknown]
  - Thrombocytopenia [Unknown]
  - Neutropenia [Unknown]
  - Electrolyte imbalance [Unknown]
  - Hypoalbuminaemia [Unknown]
  - Swelling face [Unknown]
  - C-reactive protein increased [Unknown]
  - Pyrexia [Unknown]
  - Anaemia [Unknown]
